FAERS Safety Report 10012285 (Version 1)
Quarter: 2014Q1

REPORT INFORMATION
  Report Type: Spontaneous
  Country: FR (occurrence: FR)
  Receive Date: 20140314
  Receipt Date: 20140314
  Transmission Date: 20141002
  Serious: Yes (Other)
  Sender: FDA-Public Use
  Company Number: FR-UCBSA-114257

PATIENT
  Age: 55 Year
  Sex: Male

DRUGS (3)
  1. KEPPRA [Suspect]
     Route: 048
     Dates: start: 201208
  2. OLMETEC [Suspect]
     Route: 048
     Dates: start: 2012
  3. ESOMEPRAZOLE [Suspect]
     Route: 048
     Dates: start: 2012

REACTIONS (1)
  - Systemic lupus erythematosus [Unknown]
